FAERS Safety Report 8758906 (Version 1)
Quarter: 2012Q4

REPORT INFORMATION
  Report Type: 
  Country: US (occurrence: US)
  Receive Date: 20120829
  Receipt Date: 20120829
  Transmission Date: 20130627
  Serious: Yes (Other)
  Sender: FDA-Public Use
  Company Number: US-JNJFOC-20120812962

PATIENT
  Sex: Female

DRUGS (1)
  1. NICOTINE POLACRILEX GUM 4 MG ORIGINAL [Suspect]
     Indication: PRODUCT USED FOR UNKNOWN INDICATION
     Route: 048

REACTIONS (2)
  - Nicotine dependence [Not Recovered/Not Resolved]
  - Intentional drug misuse [Unknown]
